FAERS Safety Report 4460392-4 (Version None)
Quarter: 2004Q3

REPORT INFORMATION
  Report Type: 
  Country: None (occurrence: None)
  Receive Date: 20040928
  Receipt Date: 20040507
  Transmission Date: 20050211
  Serious: No
  Sender: FDA-Public Use
  Company Number: US-GLAXOSMITHKLINE-A0510001A

PATIENT
  Age: 46 Year
  Sex: Female

DRUGS (1)
  1. SEREVENT [Suspect]
     Indication: ILL-DEFINED DISORDER
     Dosage: 1PUFF SINGLE DOSE
     Route: 055
     Dates: start: 20040506, end: 20040506

REACTIONS (2)
  - HEADACHE [None]
  - PHARYNGOLARYNGEAL PAIN [None]
